FAERS Safety Report 18320879 (Version 2)
Quarter: 2020Q4

REPORT INFORMATION
  Report Type: Spontaneous
  Country: US (occurrence: US)
  Receive Date: 20200928
  Receipt Date: 20201102
  Transmission Date: 20210113
  Serious: Yes (Other)
  Sender: FDA-Public Use
  Company Number: US-PFIZER INC-2018428430

PATIENT
  Age: 65 Year
  Sex: Female
  Weight: 47.17 kg

DRUGS (2)
  1. CHANTIX [Suspect]
     Active Substance: VARENICLINE TARTRATE
     Indication: EX-TOBACCO USER
     Dosage: 1 MG, 2X/DAY [TWICE A DAY BY MOUTH]
     Route: 048
     Dates: start: 201809
  2. CHANTIX [Suspect]
     Active Substance: VARENICLINE TARTRATE
     Indication: TOBACCO ABUSE
     Dosage: UNK, 2X/DAY (MONTH PAK TABLET 0.5 MG X 11 + 1 MG X 42)
     Route: 048

REACTIONS (2)
  - Gait disturbance [Unknown]
  - Foot fracture [Unknown]
